FAERS Safety Report 22366625 (Version 1)
Quarter: 2023Q2

REPORT INFORMATION
  Report Type: Spontaneous
  Country: US (occurrence: US)
  Receive Date: 20230525
  Receipt Date: 20230525
  Transmission Date: 20230721
  Serious: Yes (Other)
  Sender: FDA-Public Use
  Company Number: US-PFIZER INC-PV202300091863

PATIENT
  Age: 30 Year
  Sex: Male

DRUGS (2)
  1. OXBRYTA [Suspect]
     Active Substance: VOXELOTOR
     Indication: Thalassaemia beta
     Dosage: UNK
  2. OXBRYTA [Suspect]
     Active Substance: VOXELOTOR
     Indication: Sickle cell disease

REACTIONS (3)
  - Acute chest syndrome [Unknown]
  - Osteonecrosis [Unknown]
  - Sickle cell anaemia with crisis [Unknown]
